FAERS Safety Report 19146555 (Version 1)
Quarter: 2021Q2

REPORT INFORMATION
  Report Type: Spontaneous
  Country: US (occurrence: US)
  Receive Date: 20210416
  Receipt Date: 20210416
  Transmission Date: 20210717
  Serious: No
  Sender: FDA-Public Use
  Company Number: US-ELI_LILLY_AND_COMPANY-US202104007373

PATIENT
  Age: 47 Year
  Sex: Female

DRUGS (1)
  1. TALTZ [Suspect]
     Active Substance: IXEKIZUMAB
     Indication: PRODUCT USED FOR UNKNOWN INDICATION
     Dosage: 80 MG, UNKNOWN
     Route: 065

REACTIONS (8)
  - Injection site warmth [Unknown]
  - Injection site bruising [Recovered/Resolved]
  - Injection site erythema [Unknown]
  - Injection site mass [Unknown]
  - Injection site induration [Unknown]
  - Injection site pruritus [Unknown]
  - Pyrexia [Recovered/Resolved]
  - Injection site swelling [Not Recovered/Not Resolved]

NARRATIVE: CASE EVENT DATE: 20210413
